FAERS Safety Report 6098062-1 (Version None)
Quarter: 2009Q1

REPORT INFORMATION
  Report Type: 
  Country: None (occurrence: None)
  Receive Date: 20090227
  Receipt Date: 20090223
  Transmission Date: 20090719
  Serious: Yes (Other)
  Sender: FDA-Public Use
  Company Number: US-RB-010181-09

PATIENT
  Age: 23 Year
  Sex: Female

DRUGS (3)
  1. SUBUTEX [Suspect]
     Indication: DRUG USE FOR UNKNOWN INDICATION
     Dosage: GIVEN PRESCRIPTION FOR 16MG. FREQUENCY UNKNOWN
     Route: 065
  2. SUBOXONE [Suspect]
     Indication: DRUG USE FOR UNKNOWN INDICATION
     Dosage: UNKNOWN DOSE AND ROUTE
     Route: 065
  3. HEROIN [Suspect]
     Indication: DRUG ABUSE
     Dosage: REPORTED PATIENT ABUSING HEROIN WITH UNKNOWN DOSE, ROUTE, ETC.
     Route: 065

REACTIONS (3)
  - ABORTION SPONTANEOUS [None]
  - DRUG ABUSE [None]
  - DRUG EXPOSURE DURING PREGNANCY [None]
